FAERS Safety Report 8068092-9 (Version None)
Quarter: 2012Q1

REPORT INFORMATION
  Report Type: 
  Country: None (occurrence: None)
  Receive Date: 20120124
  Receipt Date: 20110922
  Transmission Date: 20120608
  Serious: No
  Sender: FDA-Public Use
  Company Number: US-AMGEN-USASP2011049115

PATIENT
  Age: 61 Year
  Sex: Female

DRUGS (3)
  1. CORAL CALCIUM [Concomitant]
     Dosage: 1 MG, QD
  2. PROLIA [Suspect]
     Indication: OSTEOPOROSIS POSTMENOPAUSAL
     Dosage: 60 MG, Q6MO
     Dates: start: 20110727
  3. VITAMIN D [Concomitant]
     Dosage: 1 IU, QD

REACTIONS (1)
  - BONE PAIN [None]
